FAERS Safety Report 7612128-3 (Version None)
Quarter: 2011Q3

REPORT INFORMATION
  Report Type: 
  Country: None (occurrence: None)
  Receive Date: 20110715
  Receipt Date: 20110706
  Transmission Date: 20111222
  Serious: Yes (Life-Threatening, Hospitalization)
  Sender: FDA-Public Use
  Company Number: JP-AMGEN-JPNCT2010008250

PATIENT
  Age: 41 Year
  Sex: Female
  Weight: 45 kg

DRUGS (24)
  1. IRINOTECAN HCL [Suspect]
     Indication: COLORECTAL CANCER
     Dosage: 150 MG/M2, Q2WK
     Route: 041
     Dates: start: 20101104, end: 20101216
  2. FLUOROURACIL [Suspect]
     Indication: COLORECTAL CANCER
     Route: 041
     Dates: start: 20101104, end: 20101216
  3. MAGNESIUM SULFATE [Concomitant]
     Route: 042
  4. GASLON N OD [Concomitant]
     Indication: STOMATITIS
     Route: 048
  5. PANITUMUMAB [Suspect]
     Indication: COLORECTAL CANCER
     Dosage: 6 MG/KG, Q2WK
     Route: 041
     Dates: start: 20101104, end: 20101118
  6. EMEND [Concomitant]
     Route: 048
  7. DIFLAL [Concomitant]
     Route: 062
  8. GLYCYRON [Concomitant]
     Route: 048
  9. DEXAMETHASONE SODIUM PHOSPHATE [Concomitant]
  10. ALOXI [Concomitant]
     Route: 042
  11. MINOCYCLINE HCL [Concomitant]
     Route: 048
  12. URSO 250 [Concomitant]
     Route: 048
  13. PANITUMUMAB [Suspect]
     Dosage: 4.8 MG/KG, Q2WK
     Route: 041
     Dates: start: 20101216, end: 20101216
  14. LEUCOVORIN CALCIUM [Suspect]
     Indication: COLORECTAL CANCER
     Dosage: 200 MG/M2, Q2WK
     Route: 041
     Dates: start: 20101104, end: 20101216
  15. ELENTAL [Concomitant]
     Route: 048
  16. ANTIHISTAMINES [Concomitant]
     Indication: PROPHYLAXIS
     Route: 065
  17. CORTICOSTEROIDS [Concomitant]
     Indication: PROPHYLAXIS
     Route: 065
  18. DEXAMETHASONE SODIUM PHOSPHATE [Concomitant]
     Route: 042
  19. DEXAMETHASONE SODIUM PHOSPHATE [Concomitant]
     Route: 042
  20. MAGNESIUM SULFATE [Concomitant]
     Dosage: 2 UNK, UNK
     Route: 042
  21. MAGNESIUM SULFATE [Concomitant]
  22. TALION [Concomitant]
     Route: 048
  23. HACHIAZULE [Concomitant]
     Route: 049
  24. RABEPRAZOLE SODIUM [Concomitant]
     Route: 048

REACTIONS (6)
  - ELECTROCARDIOGRAM QT PROLONGED [None]
  - STOMATITIS [None]
  - SKIN FISSURES [None]
  - HYPOMAGNESAEMIA [None]
  - HYPOCALCAEMIA [None]
  - DRY SKIN [None]
